FAERS Safety Report 4935071-7 (Version None)
Quarter: 2006Q1

REPORT INFORMATION
  Report Type: 
  Country: None (occurrence: None)
  Receive Date: 20060302
  Receipt Date: 20060214
  Transmission Date: 20060701
  Serious: Yes (Other)
  Sender: FDA-Public Use
  Company Number: US200602003108

PATIENT
  Age: 43 Year
  Sex: Female

DRUGS (3)
  1. FORTEO [Suspect]
  2. HUMALOG MIX 75/25 [Suspect]
     Indication: DIABETES MELLITUS
  3. FORTEO [Concomitant]

REACTIONS (5)
  - ARTHRITIS [None]
  - BLINDNESS [None]
  - BLOOD GLUCOSE INCREASED [None]
  - DIALYSIS [None]
  - PHARMACEUTICAL PRODUCT COMPLAINT [None]
